FAERS Safety Report 5068424-X (Version None)
Quarter: 2006Q3

REPORT INFORMATION
  Report Type: 
  Country: None (occurrence: None)
  Receive Date: 20060802
  Receipt Date: 20050920
  Transmission Date: 20061208
  Serious: No
  Sender: FDA-Public Use
  Company Number: US-BRISTOL-MYERS SQUIBB COMPANY-13116736

PATIENT
  Age: 53 Year
  Sex: Female
  Weight: 55 kg

DRUGS (2)
  1. COUMADIN [Suspect]
     Indication: DEEP VEIN THROMBOSIS
     Dosage: START RX IN 2001 ON VARYING DOSES; STOPPED DRUG 1 + 1/2 YEARS LATER + RESTARTED 2 WEEKS AGO (SEP-05)
     Route: 048
     Dates: start: 20010101
  2. XANAX [Concomitant]

REACTIONS (2)
  - INTERNATIONAL NORMALISED RATIO FLUCTUATION [None]
  - PAIN OF SKIN [None]
